FAERS Safety Report 18318412 (Version 1)
Quarter: 2020Q3

REPORT INFORMATION
  Report Type: Spontaneous
  Country: US (occurrence: US)
  Receive Date: 20200926
  Receipt Date: 20200926
  Transmission Date: 20201103
  Serious: Yes (Other)
  Sender: FDA-Public Use
  Company Number: None

PATIENT
  Age: 54 Year
  Sex: Female
  Weight: 53.1 kg

DRUGS (6)
  1. VIT B [Concomitant]
     Active Substance: VITAMIN B
  2. MULTIVITAMIN [Concomitant]
     Active Substance: VITAMINS
  3. VIT D [Concomitant]
     Active Substance: VITAMIN D NOS
  4. VITAMIN C [Concomitant]
     Active Substance: ASCORBIC ACID
  5. CROMOLYN SODIUM ORAL SOLUTION (CONCENTRATE) 100MG/5ML [Suspect]
     Active Substance: CROMOLYN SODIUM
     Indication: MAST CELL ACTIVATION SYNDROME
     Dosage: ?          QUANTITY:96 AMPULES;?
     Route: 048
     Dates: start: 20200401, end: 20200920
  6. CALCIUM [Concomitant]
     Active Substance: CALCIUM

REACTIONS (1)
  - Alopecia [None]

NARRATIVE: CASE EVENT DATE: 20200926
